FAERS Safety Report 7714846-5 (Version None)
Quarter: 2011Q3

REPORT INFORMATION
  Report Type: 
  Country: None (occurrence: None)
  Receive Date: 20110829
  Receipt Date: 20110822
  Transmission Date: 20111222
  Serious: Yes (Death, Hospitalization, Other)
  Sender: FDA-Public Use
  Company Number: US-ASTELLAS-2011US001221

PATIENT
  Sex: Female
  Weight: 58 kg

DRUGS (41)
  1. PREDNISONE [Concomitant]
     Dosage: 30 MG, UID/QD
     Route: 048
     Dates: start: 20110219, end: 20110225
  2. COLACE [Concomitant]
     Indication: CONSTIPATION
     Dosage: 100 MG, BID PRN
     Route: 048
  3. IPRATROPIUM BROMIDE AND ALBUTEROL SULFATE [Concomitant]
     Indication: PRODUCT USED FOR UNKNOWN INDICATION
     Dosage: 2 PUFFS QID PRN
     Route: 055
  4. DELTASONE [Concomitant]
     Indication: PRODUCT USED FOR UNKNOWN INDICATION
     Dosage: 20 MG, UID/QD
     Route: 048
  5. BENADRYL [Concomitant]
     Indication: PRODUCT USED FOR UNKNOWN INDICATION
     Dosage: 50 MG, Q 6 HOURS PRN
     Route: 042
  6. LASIX [Suspect]
     Indication: PRODUCT USED FOR UNKNOWN INDICATION
     Dosage: UNK
     Route: 042
  7. PREDNISONE [Concomitant]
     Indication: HEART AND LUNG TRANSPLANT
     Dosage: 20 MG, UID/QD
     Route: 048
     Dates: end: 20110309
  8. PREDNISONE [Concomitant]
     Dosage: 40 MG, UID/QD
     Route: 048
     Dates: start: 20110215, end: 20110218
  9. VALCYTE [Concomitant]
     Indication: ANTIVIRAL PROPHYLAXIS
     Dosage: 450 MG, BID
     Route: 048
  10. AMBIEN [Concomitant]
     Indication: SEDATION
     Dosage: 5 MG, QHS
     Route: 048
  11. SULFAMETHOXAZOLE AND TRIMETHOPRIM [Concomitant]
     Indication: PRODUCT USED FOR UNKNOWN INDICATION
     Dosage: 1 DF, 3XWEEKLY
     Route: 048
  12. SODIUM CHLORIDE [Concomitant]
     Indication: PRODUCT USED FOR UNKNOWN INDICATION
     Dosage: 2 ML, PRN
     Route: 045
  13. VICODIN [Concomitant]
     Indication: PRODUCT USED FOR UNKNOWN INDICATION
     Dosage: 1 - 2 DF, Q 6 HOURS PRN
     Route: 048
  14. PROGRAF [Suspect]
     Indication: HEART AND LUNG TRANSPLANT
     Dosage: 4 MG IN AM, 3 MG IN PM
     Route: 048
     Dates: start: 20090526
  15. CELLCEPT [Concomitant]
     Indication: HEART AND LUNG TRANSPLANT
     Dosage: 250 MG, BID 6AM + 6PM
     Route: 048
  16. PREDNISONE [Concomitant]
     Dosage: 10 MG, UID/QD
     Route: 048
     Dates: start: 20110306
  17. BACTRIM DS [Concomitant]
     Indication: ANTIFUNGAL PROPHYLAXIS
     Dosage: 800/160 MG Q M, W, F
  18. TYLENOL-500 [Concomitant]
     Indication: PRODUCT USED FOR UNKNOWN INDICATION
     Dosage: 650 MG, Q 4 HOURS PRN
     Route: 048
  19. PROVENTIL [Concomitant]
     Indication: PRODUCT USED FOR UNKNOWN INDICATION
     Dosage: 2.5 MG,  Q 4 HOURS PRN
     Route: 055
  20. INSTA-GLUCOSE [Concomitant]
     Indication: PRODUCT USED FOR UNKNOWN INDICATION
     Dosage: 15 G, PRN
     Route: 048
  21. PRILOSEC [Concomitant]
     Indication: PRODUCT USED FOR UNKNOWN INDICATION
     Dosage: 40 MG, UID/QD @ 6AM
     Route: 048
  22. M.V.I. [Concomitant]
     Indication: PRODUCT USED FOR UNKNOWN INDICATION
     Dosage: 1 DF, UID/QD
     Route: 048
  23. ROBITUSSIN DM COUGH CONTROL [Concomitant]
     Indication: PRODUCT USED FOR UNKNOWN INDICATION
     Dosage: 10 ML, Q 4 HOURS PRN
     Route: 048
  24. HUMALOG [Concomitant]
     Indication: PRODUCT USED FOR UNKNOWN INDICATION
     Dosage: 2-10 U, WITH MEALS AND HS
     Route: 058
  25. SPORANOX [Concomitant]
     Indication: PRODUCT USED FOR UNKNOWN INDICATION
     Dosage: 100 MG, BID
  26. PROGRAF [Suspect]
     Dosage: 7 MG, BID ONE 5 MG CAPSULE, TWO 1 MG CAPSULE
     Route: 048
  27. PREDNISONE [Concomitant]
     Dosage: 20 MG, UID/QD
     Route: 048
     Dates: start: 20110226, end: 20110305
  28. GLUCAGEN [Concomitant]
     Indication: PRODUCT USED FOR UNKNOWN INDICATION
     Dosage: 1 MG, PRN
     Route: 058
  29. ALBUTEROL SULFATE AUTOHALER [Concomitant]
     Indication: WHEEZING
     Dosage: 0.083 %, 2.5 MG/3ML Q4 HRS PRN
     Route: 055
  30. ALBUTEROL SULFATE AUTOHALER [Concomitant]
     Indication: DYSPNOEA
  31. TOPROL-XL [Concomitant]
     Indication: PRODUCT USED FOR UNKNOWN INDICATION
     Dosage: 25 MG, UID/QD
     Route: 048
  32. ZOLPIDEM [Concomitant]
     Indication: PRODUCT USED FOR UNKNOWN INDICATION
     Dosage: 5 MG, PRN @ HS
     Route: 048
  33. MYAMBUTOL [Concomitant]
     Indication: PRODUCT USED FOR UNKNOWN INDICATION
     Dosage: 1200 MG, UID/QD
     Route: 048
  34. OCEAN NASAL [Concomitant]
     Indication: PRODUCT USED FOR UNKNOWN INDICATION
     Dosage: 2 SRPAYS EACH NOSTRIL, PRN
     Route: 045
  35. ZOFRAN [Concomitant]
     Indication: PRODUCT USED FOR UNKNOWN INDICATION
     Dosage: 4 MG, Q 6 HOURS PRN
     Route: 042
  36. DEXTROSE [Concomitant]
     Indication: PRODUCT USED FOR UNKNOWN INDICATION
     Dosage: 50% IN 25 ML WATER SYRINGE
     Route: 042
  37. CALCIUM CARBONATE [Concomitant]
     Indication: PRODUCT USED FOR UNKNOWN INDICATION
     Dosage: 1250 MG, BID
     Route: 048
  38. TOPROL-XL [Concomitant]
     Dosage: 50 MG, UID/QD
     Route: 048
  39. GABAPENTIN [Concomitant]
     Indication: PRODUCT USED FOR UNKNOWN INDICATION
     Dosage: 300 MG, UID/QD
     Route: 048
  40. VITAMIN D2 [Concomitant]
     Indication: PRODUCT USED FOR UNKNOWN INDICATION
     Dosage: 1 CAPSULE EVERY M AND TH
     Route: 048
  41. FOLIC ACID [Concomitant]
     Indication: PRODUCT USED FOR UNKNOWN INDICATION
     Dosage: 1 MG, UID/QD
     Route: 048

REACTIONS (23)
  - PNEUMONIA [None]
  - TREATMENT NONCOMPLIANCE [None]
  - NEUTROPENIA [None]
  - HYPERTENSION [None]
  - LEUKOPENIA [None]
  - OFF LABEL USE [None]
  - PLEURAL EFFUSION [None]
  - DECUBITUS ULCER [None]
  - OBLITERATIVE BRONCHIOLITIS [None]
  - LUNG TRANSPLANT REJECTION [None]
  - URINARY TRACT INFECTION [None]
  - DEEP VEIN THROMBOSIS [None]
  - MYCOBACTERIUM AVIUM COMPLEX INFECTION [None]
  - RESPIRATORY SYNCYTIAL VIRUS BRONCHIOLITIS [None]
  - CARDIO-RESPIRATORY ARREST [None]
  - BLOOD CREATININE INCREASED [None]
  - TRANSPLANT REJECTION [None]
  - ACUTE RESPIRATORY FAILURE [None]
  - ANXIETY [None]
  - CANDIDIASIS [None]
  - CARDIAC FAILURE CONGESTIVE [None]
  - NEUROPATHY PERIPHERAL [None]
  - RENAL FAILURE [None]
